FAERS Safety Report 20564163 (Version 1)
Quarter: 2022Q1

REPORT INFORMATION
  Report Type: Spontaneous
  Country: US (occurrence: US)
  Receive Date: 20220308
  Receipt Date: 20220308
  Transmission Date: 20220423
  Serious: Yes (Other)
  Sender: FDA-Public Use
  Company Number: US-HORIZON THERAPEUTICS-HZN-2021-009161

PATIENT

DRUGS (2)
  1. DUEXIS [Suspect]
     Active Substance: FAMOTIDINE\IBUPROFEN
     Indication: Osteoarthritis
     Dosage: 1 DOSAGE FORM (800MG/26.6MG), EVERY 8 HOURS
     Route: 048
  2. COVID-19 VACCINE [Concomitant]
     Indication: Prophylaxis

REACTIONS (8)
  - Post concussion syndrome [Unknown]
  - Spinal disorder [Unknown]
  - Migraine [Unknown]
  - Joint injury [Unknown]
  - Post procedural complication [Unknown]
  - Condition aggravated [Unknown]
  - Pain [Unknown]
  - Therapeutic response unexpected [Unknown]
